FAERS Safety Report 5333831-4 (Version None)
Quarter: 2007Q2

REPORT INFORMATION
  Report Type: 
  Country: None (occurrence: None)
  Receive Date: 20070524
  Receipt Date: 20070518
  Transmission Date: 20071010
  Serious: Yes (Hospitalization)
  Sender: FDA-Public Use
  Company Number: US-ASTRAZENECA-2007UW12396

PATIENT
  Age: 33 Year
  Sex: Female
  Weight: 149.7 kg

DRUGS (13)
  1. SEROQUEL [Suspect]
     Indication: BIPOLAR DISORDER
     Route: 048
     Dates: start: 20030601, end: 20070501
  2. SEROQUEL [Suspect]
     Route: 048
     Dates: start: 20070501
  3. TOPAMAX [Suspect]
  4. GLUCOTROL [Concomitant]
  5. GLUCOPHAGE [Concomitant]
  6. LIPITOR [Concomitant]
  7. LEVOTHYROXINE SODIUM [Concomitant]
  8. EFFEXOR [Concomitant]
  9. WELLBUTRIN [Concomitant]
  10. NEURONTIN [Concomitant]
  11. DEPAKOTE [Concomitant]
  12. AMBIEN [Concomitant]
  13. ATIVAN [Concomitant]

REACTIONS (5)
  - INSOMNIA [None]
  - MOOD SWINGS [None]
  - PSYCHIATRIC SYMPTOM [None]
  - SUICIDAL IDEATION [None]
  - SUICIDE ATTEMPT [None]
